FAERS Safety Report 8847871 (Version 1)
Quarter: 2012Q4

REPORT INFORMATION
  Report Type: 
  Country: US (occurrence: US)
  Receive Date: 20121018
  Receipt Date: 20121018
  Transmission Date: 20130627
  Serious: Yes (Other)
  Sender: FDA-Public Use
  Company Number: US-ASTRAZENECA-2012SE77704

PATIENT
  Age: 25 Year
  Sex: Female

DRUGS (4)
  1. SYMBICORT PMDI [Suspect]
     Indication: ASTHMA
     Dosage: 160/4.5 MCG, BID
     Route: 055
  2. SYMBICORT PMDI [Suspect]
     Indication: ASTHMA
     Dosage: 160/4.5 MCG, 1 DOSE DAILY
     Route: 055
     Dates: start: 20121007
  3. SINGULAIR [Concomitant]
  4. ANTI-HISTAMINES [Concomitant]

REACTIONS (8)
  - Wheezing [Unknown]
  - Asthma [Unknown]
  - Urticaria [Unknown]
  - Activities of daily living impaired [Unknown]
  - Sleep disorder [Unknown]
  - Intentional drug misuse [Unknown]
  - Drug ineffective [Unknown]
  - Asthma [Unknown]
